FAERS Safety Report 4972864-4 (Version None)
Quarter: 2006Q2

REPORT INFORMATION
  Report Type: 
  Country: None (occurrence: None)
  Receive Date: 20060410
  Receipt Date: 20060320
  Transmission Date: 20061013
  Serious: Yes (Hospitalization)
  Sender: FDA-Public Use
  Company Number: US200603005366

PATIENT
  Age: 67 Year
  Sex: Female

DRUGS (3)
  1. HUMULIN U [Suspect]
     Indication: DIABETES MELLITUS
     Dates: start: 20000101
  2. ACTOS (PIOGLITAZONE UNKNOWN FORMULATION) [Concomitant]
  3. LANTUS [Concomitant]

REACTIONS (2)
  - ANXIETY [None]
  - BLOOD GLUCOSE INCREASED [None]
